FAERS Safety Report 9228836 (Version 1)
Quarter: 2013Q2

REPORT INFORMATION
  Report Type: Other
  Country: DE (occurrence: DE)
  Receive Date: 20130412
  Receipt Date: 20130412
  Transmission Date: 20140414
  Serious: Yes (Congenital Anomaly)
  Sender: FDA-Public Use
  Company Number: DE-NICOBRDEVP-2013-06069

PATIENT
  Sex: 0

DRUGS (9)
  1. LAMOTRIGINE (UNKNOWN) [Suspect]
     Indication: EPILEPSY
     Dosage: 50 [MG/D] DOSE NOT EXACTLY KNOWN; 50-300 MG/D
     Route: 064
     Dates: start: 20080922, end: 20090206
  2. SODIUM VALPROATE (UNKNOWN) [Suspect]
     Indication: EPILEPSY
     Dosage: 3000 MG, DAILY
     Route: 064
     Dates: start: 20080922, end: 20081231
  3. LEVETIRACETAM (UNKNOWN) [Suspect]
     Indication: EPILEPSY
     Dosage: 4000 MG, DAILY
     Route: 064
     Dates: start: 20080922, end: 20090213
  4. PHENYTOIN (AMALLC) [Suspect]
     Indication: EPILEPSY
     Dosage: 300 MG, DAILY
     Route: 064
     Dates: start: 20080922, end: 20090213
  5. FRISIUM [Suspect]
     Indication: EPILEPSY
     Dosage: 20 MG, UNK
     Route: 064
     Dates: start: 20080922, end: 20090213
  6. PHENOBARBITAL (UNKNOWN) [Suspect]
     Indication: EPILEPSY
     Dosage: 50 MG, DAILY
     Route: 064
     Dates: start: 20080922, end: 20090213
  7. LORAZEPAM (UNKNOWN) [Suspect]
     Indication: SLEEP DISORDER
     Dosage: AS NEEDED
     Route: 064
  8. VIMPAT [Concomitant]
     Indication: EPILEPSY
     Dosage: UNK
     Route: 064
     Dates: start: 20090204, end: 20090204
  9. THYROXIN [Concomitant]
     Indication: HYPOTHYROIDISM
     Dosage: UNK
     Route: 064

REACTIONS (5)
  - Spina bifida [Not Recovered/Not Resolved]
  - Cleft lip and palate [Not Recovered/Not Resolved]
  - Limb malformation [Not Recovered/Not Resolved]
  - Microcephaly [Not Recovered/Not Resolved]
  - Foetal exposure during pregnancy [Not Recovered/Not Resolved]
